FAERS Safety Report 4642318-3 (Version None)
Quarter: 2005Q2

REPORT INFORMATION
  Report Type: 
  Country: None (occurrence: None)
  Receive Date: 20050420
  Receipt Date: 20050408
  Transmission Date: 20051028
  Serious: Yes (Life-Threatening)
  Sender: FDA-Public Use
  Company Number: OMPQ-NO-0504S-0653

PATIENT
  Age: 75 Year
  Sex: Male
  Weight: 45 kg

DRUGS (9)
  1. OMNIPAQUE 140 [Suspect]
     Indication: METASTASIS
     Dosage: 100 ML, SINGLE DOSE, I.V.
     Route: 042
     Dates: start: 20050325, end: 20050325
  2. REBAMIPIDE (MUCOSTA) [Concomitant]
  3. ENALAPRIL MALEATE [Concomitant]
  4. NORVASC [Concomitant]
  5. ISOSORBIDE MONONITRATE (ITOROL) [Concomitant]
  6. PHENOBARBITAL (PHENOBAL) [Concomitant]
  7. MAGNESIUM OXIDE [Concomitant]
  8. DECADRON [Concomitant]
  9. ONDANSETRON HCL [Concomitant]

REACTIONS (5)
  - BLOOD PRESSURE DECREASED [None]
  - CONTRAST MEDIA REACTION [None]
  - CONVULSION [None]
  - INFUSION RELATED REACTION [None]
  - RESPIRATORY ARREST [None]
